FAERS Safety Report 25421929 (Version 1)
Quarter: 2025Q2

REPORT INFORMATION
  Report Type: Spontaneous
  Country: IR (occurrence: IR)
  Receive Date: 20250611
  Receipt Date: 20250611
  Transmission Date: 20250717
  Serious: Yes (Life-Threatening, Hospitalization, Other)
  Sender: SANDOZ
  Company Number: IR-002147023-NVSC2020IR057165

PATIENT
  Age: 77 Year
  Sex: Female

DRUGS (2)
  1. METHOTREXATE [Suspect]
     Active Substance: METHOTREXATE
     Indication: Rheumatoid arthritis
     Dosage: QD 8H 4 D
     Route: 065
  2. GLYBURIDE [Concomitant]
     Active Substance: GLYBURIDE
     Indication: Diabetes mellitus
     Route: 065

REACTIONS (16)
  - Platelet count decreased [Recovered/Resolved]
  - Electrocardiogram T wave inversion [Recovered/Resolved]
  - Conjunctival hyperaemia [Recovered/Resolved]
  - Discharge [Recovered/Resolved]
  - Stomatitis [Recovered/Resolved]
  - Petechiae [Recovered/Resolved]
  - Rash maculo-papular [Recovered/Resolved]
  - Oral mucosal erythema [Recovered/Resolved]
  - Pharyngeal swelling [Recovered/Resolved]
  - Toxicity to various agents [Recovered/Resolved]
  - Leukopenia [Recovered/Resolved]
  - Conjunctivitis [Recovered/Resolved]
  - Blood creatinine increased [Recovered/Resolved]
  - Skin lesion [Recovered/Resolved]
  - Mucosal inflammation [Recovered/Resolved]
  - Inappropriate schedule of product administration [Recovered/Resolved]
